FAERS Safety Report 24354287 (Version 1)
Quarter: 2024Q3

REPORT INFORMATION
  Report Type: Spontaneous
  Country: US (occurrence: US)
  Receive Date: 20240923
  Receipt Date: 20240923
  Transmission Date: 20241016
  Serious: Yes (Other)
  Sender: ORGANON
  Company Number: US-ORGANON-O2409USA000976

PATIENT
  Age: 71 Year
  Sex: Male

DRUGS (2)
  1. ASMANEX [Suspect]
     Active Substance: MOMETASONE FUROATE
     Dosage: 1 PUFF DAILY
     Dates: start: 2019
  2. ASMANEX [Suspect]
     Active Substance: MOMETASONE FUROATE
     Dosage: 1 PUFF DAILY
     Dates: start: 20240909

REACTIONS (6)
  - Heart rate decreased [Recovered/Resolved]
  - Malaise [Recovered/Resolved]
  - Fear [Recovered/Resolved]
  - Overdose [Unknown]
  - Product odour abnormal [Unknown]
  - Product primary packaging issue [Unknown]

NARRATIVE: CASE EVENT DATE: 20240909
